FAERS Safety Report 8844785 (Version 2)
Quarter: 2013Q2

REPORT INFORMATION
  Report Type: Spontaneous
  Country: US (occurrence: None)
  Receive Date: 20120928
  Receipt Date: 20121231
  Transmission Date: 20140414
  Serious: Yes (Hospitalization, Other)
  Sender: FDA-Public Use
  Company Number: RB-40825-2012

PATIENT
  Age: 3 Year
  Sex: Male

DRUGS (1)
  1. SUBOXONE [Suspect]
     Indication: ACCIDENTAL EXPOSURE TO PRODUCT
     Dosage: (4 MG QD SUBOXONE FILM; 1/2 8 MG STRIP ORAL)
     Route: 048
     Dates: start: 20120509, end: 20120509

REACTIONS (4)
  - Accidental exposure to product by child [None]
  - Accidental exposure to product [None]
  - Vomiting [None]
  - Sluggishness [None]
